FAERS Safety Report 18055698 (Version 2)
Quarter: 2020Q3

REPORT INFORMATION
  Report Type: Report from Study
  Country: US (occurrence: US)
  Receive Date: 20200722
  Receipt Date: 20200730
  Transmission Date: 20201103
  Serious: Yes (Hospitalization)
  Sender: FDA-Public Use
  Company Number: US-ALLERGAN-2026969US

PATIENT
  Sex: Female
  Weight: 103.95 kg

DRUGS (13)
  1. EXCEDRIN [Concomitant]
     Active Substance: ACETAMINOPHEN\ASPIRIN\CAFFEINE
     Indication: MIGRAINE
     Dosage: 1 DF, PRN
     Route: 048
     Dates: start: 1997
  2. QUETIAPINE. [Concomitant]
     Active Substance: QUETIAPINE
     Indication: BIPOLAR DISORDER
     Dosage: 100 MG, TID
     Route: 048
     Dates: start: 201810, end: 20190110
  3. BUSPIRONE [Concomitant]
     Active Substance: BUSPIRONE HYDROCHLORIDE
     Indication: ANXIETY
     Dosage: 15 MG, TID
     Route: 048
     Dates: start: 201811, end: 20190109
  4. ADVAIR HFA [Concomitant]
     Active Substance: FLUTICASONE PROPIONATE\SALMETEROL XINAFOATE
     Indication: ASTHMA
     Dosage: 1 DF, PRN
     Route: 055
     Dates: start: 2002
  5. CETIRIZINE [Concomitant]
     Active Substance: CETIRIZINE HYDROCHLORIDE
     Indication: ASTHMA
     Dosage: 10 MG, PRN
     Route: 048
     Dates: start: 2009
  6. ALBUTEROL. [Concomitant]
     Active Substance: ALBUTEROL
     Indication: ASTHMA
     Dosage: 90 ?G, PRN
     Route: 055
     Dates: start: 2006
  7. TYLENOL EXTRA STRENGTH [Concomitant]
     Active Substance: ACETAMINOPHEN
     Indication: ARTHRALGIA
     Dosage: 1000 MG, PRN
     Route: 048
     Dates: start: 1990
  8. BENADRYL [Concomitant]
     Active Substance: DIPHENHYDRAMINE HYDROCHLORIDE
     Indication: FOOD ALLERGY
     Dosage: 25 MG, PRN
     Route: 048
     Dates: start: 1993
  9. CARIPRAZINE HCL 1.5MG CAP (011327X) [Suspect]
     Active Substance: CARIPRAZINE HYDROCHLORIDE
     Indication: BIPOLAR I DISORDER
     Dosage: 1.5 MG, QD
     Route: 048
     Dates: start: 20200709, end: 20200711
  10. SINGULAIR [Concomitant]
     Active Substance: MONTELUKAST SODIUM
     Indication: ASTHMA
     Dosage: 10 MG, PRN
     Route: 048
     Dates: start: 2002
  11. TOPIRAMATE. [Concomitant]
     Active Substance: TOPIRAMATE
     Indication: MIGRAINE
     Dosage: 150 MG, QD
     Route: 048
     Dates: start: 2015, end: 20190113
  12. ALBUTEROL. [Concomitant]
     Active Substance: ALBUTEROL
     Dosage: 2.5 MG/ 0.5 ML, PRN
     Route: 055
     Dates: start: 2006
  13. TRIAMCINOLON                       /00031901/ [Concomitant]
     Active Substance: TRIAMCINOLONE
     Indication: ECZEMA
     Dosage: 1 DF, PRN
     Route: 061
     Dates: start: 2015

REACTIONS (1)
  - Palpitations [Recovering/Resolving]

NARRATIVE: CASE EVENT DATE: 20200712
